FAERS Safety Report 23908415 (Version 1)
Quarter: 2024Q2

REPORT INFORMATION
  Report Type: Spontaneous
  Country: US (occurrence: US)
  Receive Date: 20240528
  Receipt Date: 20240528
  Transmission Date: 20240716
  Serious: Yes (Hospitalization)
  Sender: FDA-Public Use
  Company Number: US-Vifor (International) Inc.-VIT-2024-04583

PATIENT
  Age: 59 Year
  Sex: Female
  Weight: 103.4 kg

DRUGS (31)
  1. RAYALDEE [Suspect]
     Active Substance: CALCIFEDIOL
     Indication: Chronic kidney disease
     Route: 048
     Dates: start: 20240216
  2. RAYALDEE [Suspect]
     Active Substance: CALCIFEDIOL
     Indication: Hyperparathyroidism secondary
  3. RAYALDEE [Suspect]
     Active Substance: CALCIFEDIOL
     Indication: Vitamin D deficiency
  4. VELTASSA [Suspect]
     Active Substance: PATIROMER
     Indication: Product used for unknown indication
     Dosage: DISSOLVE 1 PACKET INTO 1/3 CUP OF WATER AND DRINK BY MOUTH EVERY DAY.
     Route: 048
     Dates: start: 20231212
  5. ALLOPURINOL [Concomitant]
     Active Substance: ALLOPURINOL
     Dosage: 1 TABLET EVERY DAY
     Route: 048
     Dates: start: 20231228
  6. AMLODIPINE [Concomitant]
     Active Substance: AMLODIPINE BESYLATE
     Dosage: ONE (1) TABLET
     Route: 048
     Dates: start: 20230311
  7. ASPIRIN [Concomitant]
     Active Substance: ASPIRIN
     Dosage: ONE (1) TABLET
     Route: 048
     Dates: start: 20230414
  8. ATORVASTATIN [Concomitant]
     Active Substance: ATORVASTATIN
     Dosage: ONE TABLET
     Route: 048
     Dates: start: 20230822
  9. BUMETANIDE [Concomitant]
     Active Substance: BUMETANIDE
     Dosage: ONE (1) TABLET
     Route: 048
     Dates: start: 20231214
  10. CHOLECALCIFEROL [Concomitant]
     Active Substance: CHOLECALCIFEROL
     Dosage: 50000 UNIT, ONE (1) CAPSULE
     Route: 048
     Dates: start: 20230315
  11. CLONIDINE HYDROCHLORIDE [Concomitant]
     Active Substance: CLONIDINE HYDROCHLORIDE
     Dosage: ONE(1) TABLET
     Route: 048
     Dates: start: 20230921
  12. CLOPIDOGREL [Concomitant]
     Active Substance: CLOPIDOGREL BISULFATE
     Dosage: ONE(1) TABLET
     Route: 048
     Dates: start: 20230926
  13. COLCHICINE [Concomitant]
     Active Substance: COLCHICINE
     Dosage: ONE(1) TABLET
     Route: 048
     Dates: start: 20231228
  14. ERGOCALCIFEROL [Concomitant]
     Active Substance: ERGOCALCIFEROL
     Dosage: 50,000 UNIT ONE (1) CAPSULE
     Route: 048
     Dates: start: 20231221
  15. FERATE [Concomitant]
     Dosage: ONE(1) TABLET
     Route: 048
     Dates: start: 20230408
  16. FERROUS GLUCONATE [Concomitant]
     Active Substance: FERROUS GLUCONATE
     Dosage: ONE(1) TABLET
     Route: 048
     Dates: start: 20230828
  17. FERROUS SULFATE [Concomitant]
     Active Substance: FERROUS SULFATE
     Dosage: ONE(1) TABLET
     Route: 048
     Dates: start: 20220412
  18. FOLIC ACID [Concomitant]
     Active Substance: FOLIC ACID
     Dosage: ONE(1) TABLET
     Route: 048
     Dates: start: 20230512
  19. GAVILYTE G [Concomitant]
     Active Substance: POLYETHYLENE GLYCOL 3350\POTASSIUM CHLORIDE\SODIUM BICARBONATE\SODIUM CHLORIDE\SODIUM SULFATE
     Dosage: 22.74 GRAM-6.74 GRAM-5.86 GRAM ORAL SOLUTION, TAKING HALF OF THE MIX BY MOUTH BETWEEN 5 PM TO 6 PM A
     Route: 048
     Dates: start: 20230517
  20. HUMALOG [Concomitant]
     Active Substance: INSULIN LISPRO
     Dosage: KWIKPEN (U-100) 100 UNIT/ML 12 UNITS
     Route: 058
     Dates: start: 20230803
  21. INSULIN LISPRO [Concomitant]
     Active Substance: INSULIN LISPRO
     Dosage: 100 UNIT/ML 12 UNITS WITH MEALS
     Route: 058
     Dates: start: 20221202
  22. ISOSORBIDE DINITRATE [Concomitant]
     Active Substance: ISOSORBIDE DINITRATE
     Dosage: ONE (1) TABLET
     Route: 048
     Dates: start: 20230310
  23. LISINOPRIL [Concomitant]
     Active Substance: LISINOPRIL
     Dosage: ONE (1) TABLET
     Route: 048
     Dates: start: 20230411
  24. LOSARTAN [Concomitant]
     Active Substance: LOSARTAN
     Dosage: ONE (1) TABLET
     Route: 048
     Dates: start: 20230801
  25. METOLAZONE [Concomitant]
     Active Substance: METOLAZONE
     Dosage: ONE (1) TABLET
     Route: 048
     Dates: start: 20231214
  26. METOPROLOL SUCCINATE [Concomitant]
     Active Substance: METOPROLOL SUCCINATE
     Dosage: EXTENDED RELEASE 24 HOUR, ONE TABLET
     Route: 048
     Dates: start: 20230815
  27. OZEMPIC [Concomitant]
     Active Substance: SEMAGLUTIDE
     Dosage: 0.25 OR 0.5 MG (2MG/1.5 ML) SUBCUTANEOUS PEN INJECTOR
     Route: 058
     Dates: start: 20230921
  28. PANTOPRAZOLE [Concomitant]
     Active Substance: PANTOPRAZOLE
     Dosage: ONE TABLET, ONCE EVERY DAY IN THE MORNING
     Route: 048
     Dates: start: 20230901
  29. SODIUM BICARBONATE [Concomitant]
     Active Substance: SODIUM BICARBONATE
     Dosage: TWO TABLETS
     Route: 048
     Dates: start: 20230510
  30. TRESIBA [Concomitant]
     Active Substance: INSULIN DEGLUDEC
     Dosage: U-100 INSULIN 100 UNIT/ML (3ML) AND SUBCUTANEOUS PEN, 25 UNITS SUBCUTANEOUSLY EVERY DAY AS DIRECTED
     Route: 058
     Dates: start: 20230722
  31. RANOLAZINE [Concomitant]
     Active Substance: RANOLAZINE
     Dosage: EXTENDED RELEASE, 12 HOUR, ONE TABLET
     Route: 048
     Dates: start: 20230908

REACTIONS (1)
  - Hospitalisation [Unknown]

NARRATIVE: CASE EVENT DATE: 20240401
